FAERS Safety Report 12371045 (Version 2)
Quarter: 2016Q2

REPORT INFORMATION
  Report Type: Report from Study
  Country: CA (occurrence: CA)
  Receive Date: 20160516
  Receipt Date: 20160524
  Transmission Date: 20160815
  Serious: Yes (Hospitalization, Other)
  Sender: FDA-Public Use
  Company Number: CA-AMGEN-CANSL2016057279

PATIENT
  Age: 64 Year
  Sex: Female

DRUGS (3)
  1. PHENOBARBITAL. [Concomitant]
     Active Substance: PHENOBARBITAL
     Dosage: 30 MG, QD
     Route: 065
  2. TEGRETOL [Suspect]
     Active Substance: CARBAMAZEPINE
     Indication: PRODUCT USED FOR UNKNOWN INDICATION
     Dosage: UNK
     Route: 065
  3. ENBREL [Suspect]
     Active Substance: ETANERCEPT
     Indication: RHEUMATOID ARTHRITIS
     Dosage: 50 MG, UNK
     Route: 065
     Dates: start: 20030220

REACTIONS (7)
  - Blood sodium decreased [Unknown]
  - Musculoskeletal pain [Not Recovered/Not Resolved]
  - Nausea [Unknown]
  - Hospitalisation [Unknown]
  - Knee arthroplasty [Unknown]
  - Arthralgia [Not Recovered/Not Resolved]
  - Foot operation [Unknown]

NARRATIVE: CASE EVENT DATE: 2013
